FAERS Safety Report 7305458-6 (Version None)
Quarter: 2011Q1

REPORT INFORMATION
  Report Type: 
  Country: None (occurrence: None)
  Receive Date: 20110222
  Receipt Date: 20110208
  Transmission Date: 20110831
  Serious: Yes (Hospitalization)
  Sender: FDA-Public Use
  Company Number: US-ELI_LILLY_AND_COMPANY-US201008003459

PATIENT
  Sex: Male
  Weight: 117.1 kg

DRUGS (6)
  1. HUMIRA [Concomitant]
  2. ANDROGEL [Concomitant]
  3. PROTONIX [Concomitant]
  4. FLAGYL [Concomitant]
  5. SOMATROPIN [Suspect]
     Dosage: 0.2 MG, DAILY (1/D)
     Dates: start: 20060401, end: 20100106
  6. VITAMIN D [Concomitant]

REACTIONS (1)
  - METASTASIS [None]
